FAERS Safety Report 14509602 (Version 1)
Quarter: 2018Q1

REPORT INFORMATION
  Report Type: Spontaneous
  Country: US (occurrence: US)
  Receive Date: 20180209
  Receipt Date: 20180209
  Transmission Date: 20180509
  Serious: No
  Sender: FDA-Public Use
  Company Number: US-GLAXOSMITHKLINE-US2018017665

PATIENT
  Age: 34 Year
  Sex: Female
  Weight: 97 kg

DRUGS (1)
  1. EQUATE NICOTINE [Suspect]
     Active Substance: NICOTINE
     Indication: PRODUCT USED FOR UNKNOWN INDICATION
     Dosage: 7 MG, UNK
     Dates: start: 20180120, end: 20180129

REACTIONS (3)
  - Urticaria [Unknown]
  - Application site swelling [Unknown]
  - Application site rash [Unknown]

NARRATIVE: CASE EVENT DATE: 20180130
